FAERS Safety Report 5664665-9 (Version None)
Quarter: 2008Q1

REPORT INFORMATION
  Report Type: 
  Country: None (occurrence: None)
  Receive Date: 20080314
  Receipt Date: 20080303
  Transmission Date: 20080703
  Serious: Yes (Life-Threatening)
  Sender: FDA-Public Use
  Company Number: HR-ROCHE-551053

PATIENT
  Age: 45 Year
  Sex: Female

DRUGS (5)
  1. ROCEPHIN [Suspect]
     Indication: BRAIN ABSCESS
     Dosage: STRENGTH AND FORMULATION: 2X2 G
     Route: 042
     Dates: start: 20080128
  2. STAPHYLEX [Suspect]
     Indication: BRAIN ABSCESS
     Dosage: STRENGTH AND FORMULATION: 6X2 G
     Route: 042
     Dates: start: 20080128
  3. METRONIDAZOLE [Concomitant]
     Dates: start: 20080128, end: 20080210
  4. LUPOCET [Concomitant]
  5. IBUPROFEN [Concomitant]

REACTIONS (2)
  - ACUTE RESPIRATORY DISTRESS SYNDROME [None]
  - RASH [None]
